FAERS Safety Report 7446145-3 (Version None)
Quarter: 2011Q2

REPORT INFORMATION
  Report Type: 
  Country: None (occurrence: None)
  Receive Date: 20110429
  Receipt Date: 20110420
  Transmission Date: 20111010
  Serious: Yes (Other)
  Sender: FDA-Public Use
  Company Number: B0711485A

PATIENT
  Age: 67 Year
  Sex: Male
  Weight: 186 kg

DRUGS (3)
  1. TRUVADA [Concomitant]
     Route: 048
     Dates: start: 20080112
  2. SELZENTRY [Suspect]
     Indication: HIV INFECTION
     Dosage: 150MG TWICE PER DAY
     Route: 048
     Dates: start: 20060303
  3. KALETRA [Concomitant]
     Route: 048
     Dates: start: 20030630

REACTIONS (1)
  - ANAL CANCER [None]
